FAERS Safety Report 22749992 (Version 6)
Quarter: 2025Q2

REPORT INFORMATION
  Report Type: Other
  Country: CA (occurrence: CA)
  Receive Date: 20230726
  Receipt Date: 20250630
  Transmission Date: 20250716
  Serious: Yes (Other)
  Sender: INTERCEPT PHARMACEUTICALS
  Company Number: CA-INTERCEPT-PM2020002086

PATIENT
  Age: 59 Year
  Sex: Female

DRUGS (9)
  1. OCALIVA [Suspect]
     Active Substance: OBETICHOLIC ACID
     Indication: Primary biliary cholangitis
     Dosage: 5 MG, QD
     Route: 048
     Dates: start: 20180111, end: 2018
  2. OCALIVA [Suspect]
     Active Substance: OBETICHOLIC ACID
     Dosage: 10 MG, QD
     Route: 048
     Dates: start: 2018
  3. URSO [Suspect]
     Active Substance: URSODIOL
     Indication: Primary biliary cholangitis
     Dosage: 500 MG, QD
     Route: 048
     Dates: start: 20100101
  4. URSO [Suspect]
     Active Substance: URSODIOL
     Dosage: 1250 MG, QD
     Route: 048
     Dates: start: 201801
  5. URSO [Suspect]
     Active Substance: URSODIOL
     Route: 048
     Dates: start: 2018
  6. URSO [Suspect]
     Active Substance: URSODIOL
     Route: 048
     Dates: start: 2018
  7. ALVESCO [Concomitant]
     Active Substance: CICLESONIDE
  8. SEREVENT DISKUS [Concomitant]
     Active Substance: SALMETEROL XINAFOATE
  9. VENTOLIN [Concomitant]
     Active Substance: ALBUTEROL SULFATE

REACTIONS (9)
  - Haemolysis [Unknown]
  - Steatohepatitis [Unknown]
  - Sleep disorder [Unknown]
  - Central obesity [Unknown]
  - Osteoporosis [Unknown]
  - Illness [Unknown]
  - Influenza [Unknown]
  - Blood alkaline phosphatase abnormal [Recovering/Resolving]
  - Pruritus [Not Recovered/Not Resolved]

NARRATIVE: CASE EVENT DATE: 20190916
